FAERS Safety Report 5832101-5 (Version None)
Quarter: 2008Q3

REPORT INFORMATION
  Report Type: 
  Country: None (occurrence: None)
  Receive Date: 20080731
  Receipt Date: 20080722
  Transmission Date: 20090109
  Serious: Yes (Other)
  Sender: FDA-Public Use
  Company Number: 163-20785-08071332

PATIENT
  Sex: Male

DRUGS (3)
  1. THALOMID [Suspect]
     Indication: MULTIPLE MYELOMA
     Dosage: 100 MG DAILY,ORAL; 50 MG, 1 IN 1 D, ORAL
     Route: 048
     Dates: start: 20051122, end: 20060101
  2. THALOMID [Suspect]
     Indication: MULTIPLE MYELOMA
     Dosage: 100 MG DAILY,ORAL; 50 MG, 1 IN 1 D, ORAL
     Route: 048
     Dates: start: 20060105, end: 20080601
  3. THALOMID [Suspect]
     Indication: MULTIPLE MYELOMA
     Dosage: 100 MG DAILY,ORAL; 50 MG, 1 IN 1 D, ORAL
     Route: 048
     Dates: start: 20020830

REACTIONS (1)
  - RENAL DISORDER [None]
